FAERS Safety Report 15998145 (Version 9)
Quarter: 2021Q2

REPORT INFORMATION
  Report Type: Report from Study
  Country: DE (occurrence: DE)
  Receive Date: 20190223
  Receipt Date: 20210524
  Transmission Date: 20210716
  Serious: Yes (Hospitalization)
  Sender: FDA-Public Use
  Company Number: DE-ROCHE-2264318

PATIENT
  Age: 57 Year
  Sex: Female
  Weight: 98 kg

DRUGS (5)
  1. VEMURAFENIB. [Suspect]
     Active Substance: VEMURAFENIB
     Indication: MALIGNANT MELANOMA
     Dosage: DATE OF LAST DOSE PRIOR TO EVENT WAS 10/FEB/2019
     Route: 048
     Dates: start: 20190201, end: 20190212
  2. COBIMETINIB. [Suspect]
     Active Substance: COBIMETINIB
     Dosage: DATE OF LAST DOSE PRIOR TO SAE: 08/FEB/2021
     Route: 048
  3. VEMURAFENIB. [Suspect]
     Active Substance: VEMURAFENIB
     Dosage: DATE OF LAST DOSE (480 MG) PRIOR TO SAE: 21/FEB/2021
     Route: 048
  4. ATEZOLIZUMAB. [Suspect]
     Active Substance: ATEZOLIZUMAB
     Indication: MALIGNANT MELANOMA
     Dosage: DATE OF LAST DOSE 91200 MG) PRIOR TO SAE: 04/JAN/2021
     Route: 042
     Dates: start: 20190430
  5. COBIMETINIB. [Suspect]
     Active Substance: COBIMETINIB
     Indication: MALIGNANT MELANOMA
     Dosage: DATE OF LAST DOSE PRIOR TO EVENT WAS 12/FEB/2019
     Route: 048
     Dates: start: 20190201

REACTIONS (3)
  - Hepatitis [Not Recovered/Not Resolved]
  - Acute kidney injury [Recovered/Resolved]
  - Nasopharyngitis [Not Recovered/Not Resolved]

NARRATIVE: CASE EVENT DATE: 20190210
